FAERS Safety Report 26130159 (Version 1)
Quarter: 2025Q4

REPORT INFORMATION
  Report Type: Spontaneous
  Country: US (occurrence: US)
  Receive Date: 20251208
  Receipt Date: 20251208
  Transmission Date: 20260117
  Serious: No
  Sender: UROGEN PHARMA
  Company Number: US-UROGEN PHARMA LTD.-2025-UGN-000198

PATIENT

DRUGS (2)
  1. ZUSDURI [Suspect]
     Active Substance: MITOMYCIN
     Indication: Bladder transitional cell carcinoma
     Dosage: 75 MILLIGRAM 56 ML INSTILLED VIA URETHRA INTO THE BLADDER (INSTILLATION)
     Route: 043
     Dates: start: 20251009, end: 20251009
  2. ZUSDURI [Suspect]
     Active Substance: MITOMYCIN
     Dosage: 75 MILLIGRAM 56 ML INSTILLED VIA URETHRA INTO THE BLADDER (INSTILLATION)
     Route: 043
     Dates: start: 20251016, end: 20251016

REACTIONS (5)
  - Taste disorder [Recovered/Resolved]
  - Chills [Recovered/Resolved]
  - Feeling hot [Recovered/Resolved]
  - Pollakiuria [Not Recovered/Not Resolved]
  - Dysuria [Not Recovered/Not Resolved]

NARRATIVE: CASE EVENT DATE: 20251009
